FAERS Safety Report 10448855 (Version 1)
Quarter: 2014Q3

REPORT INFORMATION
  Report Type: Spontaneous
  Country: US (occurrence: US)
  Receive Date: 20140912
  Receipt Date: 20140912
  Transmission Date: 20150326
  Serious: No
  Sender: FDA-Public Use
  Company Number: US-BIOGENIDEC-2014BI092287

PATIENT
  Sex: Female

DRUGS (1)
  1. AVONEX [Suspect]
     Active Substance: INTERFERON BETA-1A
     Indication: MULTIPLE SCLEROSIS
     Route: 030
     Dates: start: 20090414

REACTIONS (8)
  - Headache [Unknown]
  - Sleep disorder [Unknown]
  - Abdominal discomfort [Unknown]
  - Hunger [Unknown]
  - Night sweats [Unknown]
  - Feeling abnormal [Unknown]
  - Cold sweat [Unknown]
  - Insomnia [Unknown]
